FAERS Safety Report 18665045 (Version 4)
Quarter: 2021Q2

REPORT INFORMATION
  Report Type: Report from Study
  Country: BR (occurrence: BR)
  Receive Date: 20201225
  Receipt Date: 20210415
  Transmission Date: 20210717
  Serious: Yes (Hospitalization, Other)
  Sender: FDA-Public Use
  Company Number: NVSC2020BR338889

PATIENT
  Age: 54 Year
  Sex: Female

DRUGS (3)
  1. PIQRAY [Suspect]
     Active Substance: ALPELISIB
     Dosage: 250 MG
     Route: 065
     Dates: start: 20210118
  2. PIQRAY [Suspect]
     Active Substance: ALPELISIB
     Dosage: UNK
     Route: 065
     Dates: end: 20210321
  3. PIQRAY [Suspect]
     Active Substance: ALPELISIB
     Indication: BREAST CANCER FEMALE
     Dosage: 300 MG
     Route: 065
     Dates: start: 20201130, end: 20201229

REACTIONS (27)
  - Diabetes mellitus [Unknown]
  - Mineral deficiency [Unknown]
  - Dehydration [Recovering/Resolving]
  - Dizziness [Not Recovered/Not Resolved]
  - Pigmentation disorder [Recovering/Resolving]
  - Asthenia [Recovering/Resolving]
  - Erythema [Recovering/Resolving]
  - Nausea [Recovered/Resolved]
  - Hyperglycaemia [Recovered/Resolved]
  - Malaise [Recovered/Resolved]
  - Skin plaque [Recovering/Resolving]
  - Eye discharge [Unknown]
  - Blood glucose increased [Recovering/Resolving]
  - Acne [Recovering/Resolving]
  - Stomatitis [Recovered/Resolved]
  - Pain [Unknown]
  - Mucosal disorder [Unknown]
  - Weight decreased [Recovered/Resolved]
  - Pruritus [Unknown]
  - Rash [Unknown]
  - Vulvovaginal inflammation [Recovered/Resolved]
  - Fatigue [Not Recovered/Not Resolved]
  - Diarrhoea [Recovered/Resolved]
  - Vomiting [Recovered/Resolved]
  - Erythema [Recovered/Resolved]
  - Diarrhoea [Unknown]
  - Dyspnoea [Unknown]

NARRATIVE: CASE EVENT DATE: 2020
